FAERS Safety Report 5406560-6 (Version None)
Quarter: 2007Q3

REPORT INFORMATION
  Report Type: 
  Country: None (occurrence: None)
  Receive Date: 20070806
  Receipt Date: 20070725
  Transmission Date: 20080115
  Serious: Yes (Death)
  Sender: FDA-Public Use
  Company Number: AU-PFIZER INC-2007045412

PATIENT
  Sex: Female

DRUGS (7)
  1. SUTENT [Suspect]
     Route: 048
     Dates: start: 20070228, end: 20070328
  2. OXYCONTIN [Concomitant]
     Route: 048
  3. MAXOLON [Concomitant]
     Route: 048
  4. TRIMETHOPRIM [Concomitant]
     Route: 048
  5. ENDONE [Concomitant]
     Route: 048
  6. PANADOL [Concomitant]
     Route: 048
  7. TEMAZEPAM [Concomitant]
     Route: 048

REACTIONS (1)
  - DISEASE PROGRESSION [None]
